FAERS Safety Report 8062678-3 (Version None)
Quarter: 2012Q1

REPORT INFORMATION
  Report Type: 
  Country: None (occurrence: None)
  Receive Date: 20120123
  Receipt Date: 20120113
  Transmission Date: 20120608
  Serious: Yes (Hospitalization, Other)
  Sender: FDA-Public Use
  Company Number: US-BAYER-2011-072061

PATIENT
  Age: 32 Year
  Sex: Female
  Weight: 86 kg

DRUGS (7)
  1. YAZ [Suspect]
     Indication: DYSMENORRHOEA
  2. CIPROFLOXACIN [Concomitant]
  3. YAZ [Suspect]
     Indication: ACNE
     Dosage: UNK
     Dates: start: 20100601, end: 20101208
  4. FLAGYL [Concomitant]
  5. ANTIHISTAMINES [Concomitant]
  6. FERROUS SULFATE TAB [Concomitant]
     Dosage: 325 MG, BID
  7. STEROIDS, UNSPECIFIED [Concomitant]

REACTIONS (10)
  - CEREBROVASCULAR ACCIDENT [None]
  - INJURY [None]
  - MOBILITY DECREASED [None]
  - PAIN [None]
  - DEEP VEIN THROMBOSIS [None]
  - CEREBRAL INFARCTION [None]
  - MEMORY IMPAIRMENT [None]
  - PULMONARY EMBOLISM [None]
  - SPEECH DISORDER [None]
  - QUALITY OF LIFE DECREASED [None]
